FAERS Safety Report 10141904 (Version 1)
Quarter: 2014Q2

REPORT INFORMATION
  Report Type: Spontaneous
  Country: US (occurrence: US)
  Receive Date: 20140429
  Receipt Date: 20140429
  Transmission Date: 20141212
  Serious: No
  Sender: FDA-Public Use
  Company Number: US-ASTRAZENECA-2014SE22300

PATIENT
  Age: 72 Year
  Sex: Male
  Weight: 81.6 kg

DRUGS (2)
  1. PULMICORT RESPULES [Suspect]
     Indication: SINUSITIS
     Route: 055
     Dates: end: 2009
  2. PULMICORT RESPULES [Suspect]
     Indication: SINUSITIS
     Route: 055
     Dates: start: 2014, end: 2014

REACTIONS (2)
  - Nasal congestion [Not Recovered/Not Resolved]
  - Intentional product misuse [Unknown]
